FAERS Safety Report 6000275-1 (Version None)
Quarter: 2008Q4

REPORT INFORMATION
  Report Type: 
  Country: None (occurrence: None)
  Receive Date: 20081211
  Receipt Date: 20081211
  Transmission Date: 20090506
  Serious: Yes (Disabling)
  Sender: FDA-Public Use
  Company Number: None

PATIENT
  Age: 44 Year
  Sex: Male
  Weight: 93.441 kg

DRUGS (5)
  1. TRILEPTAL [Suspect]
     Indication: CONVULSION
     Dosage: 600MG IN AM AND 900MG IN PM PO
     Route: 048
     Dates: start: 20080701, end: 20081210
  2. TRILEPTAL [Suspect]
     Indication: NERVOUS SYSTEM DISORDER
     Dosage: 600MG IN AM AND 900MG IN PM PO
     Route: 048
     Dates: start: 20080701, end: 20081210
  3. COUMADIN [Suspect]
     Indication: DEEP VEIN THROMBOSIS
     Dosage: 15MG MWF AND 12.5MG ROW PO
     Route: 048
     Dates: start: 20070601, end: 20081210
  4. COUMADIN [Suspect]
     Indication: FACTOR V DEFICIENCY
     Dosage: 15MG MWF AND 12.5MG ROW PO
     Route: 048
     Dates: start: 20070601, end: 20081210
  5. COUMADIN [Suspect]
     Indication: PULMONARY EMBOLISM
     Dosage: 15MG MWF AND 12.5MG ROW PO
     Route: 048
     Dates: start: 20070601, end: 20081210

REACTIONS (2)
  - DRUG INTERACTION [None]
  - THERAPY REGIMEN CHANGED [None]
